FAERS Safety Report 8255514-3 (Version None)
Quarter: 2012Q2

REPORT INFORMATION
  Report Type: 
  Country: None (occurrence: None)
  Receive Date: 20120403
  Receipt Date: 20120329
  Transmission Date: 20120825
  Serious: Yes (Life-Threatening)
  Sender: FDA-Public Use
  Company Number: ZA-PFIZER INC-2012082722

PATIENT
  Age: 52 Year
  Sex: Female
  Weight: 68.027 kg

DRUGS (8)
  1. VARENICLINE TARTRATE [Suspect]
     Dosage: 1 MG, UNK
     Route: 048
     Dates: start: 20120201, end: 20120101
  2. BILOCOR [Concomitant]
     Dosage: UNK
  3. ESTROFEM [Concomitant]
     Dosage: UNK
  4. ESTRADIOL [Concomitant]
     Dosage: UNK
  5. QUINAPRIL HCL [Concomitant]
     Dosage: UNK
  6. ACCUMAX CO [Concomitant]
     Dosage: UNK
  7. VARENICLINE TARTRATE [Suspect]
     Dosage: 0.5 MG, 2X/DAY (BD)
     Route: 048
     Dates: start: 20120201, end: 20120201
  8. ALZAM [Concomitant]
     Dosage: UNK

REACTIONS (5)
  - ANAPHYLACTIC SHOCK [None]
  - PRURITUS [None]
  - CHEST DISCOMFORT [None]
  - DIZZINESS [None]
  - FEELING HOT [None]
